FAERS Safety Report 10388984 (Version 1)
Quarter: 2014Q3

REPORT INFORMATION
  Report Type: Spontaneous
  Country: US (occurrence: None)
  Receive Date: 20140812
  Receipt Date: 20140812
  Transmission Date: 20150326
  Serious: Yes (Death, Other)
  Sender: FDA-Public Use
  Company Number: AUR-APL-2014-08535

PATIENT
  Age: 64 Year
  Sex: Male

DRUGS (6)
  1. NITROGLYCERINE [Concomitant]
     Active Substance: NITROGLYCERIN
  2. CLOPIDOGREL [Suspect]
     Active Substance: CLOPIDOGREL BISULFATE
     Indication: PRODUCT USED FOR UNKNOWN INDICATION
  3. NOVASTAN [Concomitant]
     Active Substance: ARGATROBAN
  4. ASPIRIN. [Concomitant]
     Active Substance: ASPIRIN
  5. HEPARIN [Concomitant]
     Active Substance: HEPARIN SODIUM
  6. EPTIFIBATIDE [Concomitant]
     Active Substance: EPTIFIBATIDE

REACTIONS (11)
  - Chest pain [None]
  - Myocardial infarction [None]
  - Ventricular tachycardia [None]
  - Unresponsive to stimuli [None]
  - Hypotension [None]
  - International normalised ratio increased [None]
  - General physical health deterioration [None]
  - Disseminated intravascular coagulation [None]
  - Localised intraabdominal fluid collection [None]
  - Heparin-induced thrombocytopenia [None]
  - Petechiae [None]
